FAERS Safety Report 7885225-5 (Version None)
Quarter: 2011Q4

REPORT INFORMATION
  Report Type: 
  Country: None (occurrence: None)
  Receive Date: 20111102
  Receipt Date: 20111027
  Transmission Date: 20120403
  Serious: Yes (Hospitalization, Other)
  Sender: FDA-Public Use
  Company Number: PHHY2010CA26608

PATIENT
  Sex: Female
  Weight: 63.6 kg

DRUGS (21)
  1. HORMONES [Concomitant]
     Dosage: UNK UKN, UNK
  2. PAROXETINE HCL [Concomitant]
     Dosage: 20 MG, UNK
  3. OXAZEPAM [Concomitant]
     Dosage: 30 MG, UNK
  4. ZOLEDRONOC ACID [Suspect]
     Indication: OSTEOPOROSIS
     Dosage: 5 MG,(YEARLY) UNK
     Route: 042
     Dates: start: 20091123
  5. ELAVIL [Concomitant]
     Dosage: 50 MG, UNK
  6. ACETAMINOPHEN W/ CODEINE [Concomitant]
     Dosage: UNK DF (500 MG/8MG) QID
  7. IMDUR [Concomitant]
     Dosage: 60 MG, UNK
  8. FORTEO [Concomitant]
     Dosage: UNK UKN, UNK
  9. MIACALCIN [Concomitant]
     Dosage: UNK UKN, UNK
  10. LIPITOR [Concomitant]
     Dosage: 40 MG, UNK
  11. PLAVIX [Concomitant]
     Dosage: 75 MG, UNK
  12. PANTOPRAZOLE SODIUM [Concomitant]
     Dosage: 40 MG, UNK
  13. PANTOPRAZOLE [Concomitant]
     Dosage: 40 MG, UNK
  14. DIDROCAL [Concomitant]
     Dosage: 400 MG, UNK
  15. VITAMIN D [Concomitant]
     Dosage: 400 IU, BID
  16. CALCIUM WITH VITAMIN D [Concomitant]
     Dosage: 500 MG, BID
  17. NITROGLYCERIN [Concomitant]
     Dosage: 0.4 MG/EAM
  18. EVISTA [Concomitant]
     Dosage: 670 MG, UNK
  19. CALCIUM [Concomitant]
     Dosage: 500 MG, BID
  20. ACETAMINOPHEN [Concomitant]
     Dosage: UNK UKN, UNK
  21. ASPIRIN [Concomitant]
     Dosage: 80 MG, UNK

REACTIONS (7)
  - FALL [None]
  - MYALGIA [None]
  - CEREBRAL HAEMORRHAGE [None]
  - HEADACHE [None]
  - HEAD INJURY [None]
  - VENOUS OCCLUSION [None]
  - INFLUENZA LIKE ILLNESS [None]
